FAERS Safety Report 8131447-8 (Version None)
Quarter: 2012Q1

REPORT INFORMATION
  Report Type: 
  Country: None (occurrence: None)
  Receive Date: 20120213
  Receipt Date: 20120203
  Transmission Date: 20120608
  Serious: Yes (Other)
  Sender: FDA-Public Use
  Company Number: US-BAYER-2011-069905

PATIENT
  Age: 17 Year
  Sex: Female
  Weight: 72.562 kg

DRUGS (7)
  1. XANAX [Concomitant]
  2. YAZ [Suspect]
     Indication: PREMENSTRUAL SYNDROME
  3. LORTAB [Concomitant]
  4. ZYRTEC [Concomitant]
     Dosage: UNK UNK, PRN
  5. YAZ [Suspect]
     Indication: CONTRACEPTION
     Dosage: UNK
     Dates: start: 20070101
  6. IBUPROFEN [Concomitant]
     Dosage: 800 MG, UNK
  7. ACETAMINOPHEN [Concomitant]
     Indication: PAIN MANAGEMENT

REACTIONS (4)
  - EMOTIONAL DISTRESS [None]
  - THROMBOSIS [None]
  - PAIN [None]
  - ANXIETY [None]
